FAERS Safety Report 17453135 (Version 5)
Quarter: 2020Q3

REPORT INFORMATION
  Report Type: Report from Study
  Country: US (occurrence: US)
  Receive Date: 20200224
  Receipt Date: 20200710
  Transmission Date: 20201102
  Serious: Yes (Hospitalization, Other)
  Sender: FDA-Public Use
  Company Number: US-GILEAD-2020-0451718

PATIENT
  Age: 75 Year
  Sex: Female
  Weight: 47 kg

DRUGS (77)
  1. PROCHLORPERAZINE. [Concomitant]
     Active Substance: PROCHLORPERAZINE
     Dosage: 10,MG,AS NECESSARY
     Route: 048
     Dates: start: 2000
  2. LORATADINE. [Concomitant]
     Active Substance: LORATADINE
     Dosage: 10,MG,DAILY
     Route: 048
     Dates: start: 2000, end: 20200302
  3. FAMOTIDINE. [Concomitant]
     Active Substance: FAMOTIDINE
     Dosage: 20,MG,TWICE DAILY
     Route: 048
     Dates: start: 2000, end: 20200218
  4. SODIUM CHLORIDE 0.9% [Concomitant]
     Active Substance: SODIUM CHLORIDE
     Dosage: 500,ML,ONCE
     Route: 042
     Dates: start: 20200213, end: 20200213
  5. SODIUM CHLORIDE 0.9% [Concomitant]
     Active Substance: SODIUM CHLORIDE
     Dosage: 250,ML,AS NECESSARY
     Route: 042
     Dates: start: 20200217, end: 20200220
  6. FENTANYL. [Concomitant]
     Active Substance: FENTANYL
     Dosage: 25,UG,TWICE DAILY
     Route: 042
     Dates: start: 20200205, end: 20200205
  7. MAGNESIUM SULFATE. [Concomitant]
     Active Substance: MAGNESIUM SULFATE
     Dosage: 4,G,ONCE
     Route: 042
     Dates: start: 20200215, end: 20200215
  8. MAGNESIUM SULFATE. [Concomitant]
     Active Substance: MAGNESIUM SULFATE
     Dosage: 2,G,DAILY
     Route: 042
     Dates: start: 20200217
  9. LEVETIRACETAM. [Concomitant]
     Active Substance: LEVETIRACETAM
     Dosage: 750,MG,TWICE DAILY
     Route: 048
     Dates: start: 20200209
  10. FLUCONAZOLE. [Concomitant]
     Active Substance: FLUCONAZOLE
     Dosage: 200,MG,DAILY
     Route: 048
     Dates: start: 20200209
  11. METOPROLOL. [Concomitant]
     Active Substance: METOPROLOL
     Dosage: 12.5,MG,TWICE DAILY
     Route: 048
     Dates: start: 2000, end: 20200220
  12. METOPROLOL. [Concomitant]
     Active Substance: METOPROLOL
     Dosage: 12.5,MG,TWICE DAILY
     Route: 048
     Dates: start: 20200229
  13. SODIUM CHLORIDE 0.9% [Concomitant]
     Active Substance: SODIUM CHLORIDE
     Dosage: 1000,ML,AS NECESSARY
     Route: 042
     Dates: start: 20200225, end: 20200226
  14. SODIUM CHLORIDE 0.9% [Concomitant]
     Active Substance: SODIUM CHLORIDE
     Dosage: 1000,ML,AS NECESSARY
     Route: 042
     Dates: start: 20200229, end: 20200309
  15. NYSTATIN. [Concomitant]
     Active Substance: NYSTATIN
     Dosage: 500000,OTHER,ONCE
     Route: 050
     Dates: start: 20200220, end: 20200220
  16. ACETAMINOPHEN. [Concomitant]
     Active Substance: ACETAMINOPHEN
     Dosage: 650,MG,ONCE
     Route: 048
     Dates: start: 20200210, end: 20200210
  17. CIPROFLOXACIN. [Concomitant]
     Active Substance: CIPROFLOXACIN
     Dosage: 500,MG,TWICE DAILY
     Route: 048
     Dates: start: 20200210, end: 20200214
  18. POTASSIUM CHLORIDE. [Concomitant]
     Active Substance: POTASSIUM CHLORIDE
     Dosage: 40,OTHER,DAILY
     Route: 048
     Dates: start: 20200309, end: 20200310
  19. AXICABTAGENE CILOLEUCEL [Suspect]
     Active Substance: AXICABTAGENE CILOLEUCEL
     Indication: DIFFUSE LARGE B-CELL LYMPHOMA
     Dosage: 68 ML, ONCE
     Route: 042
     Dates: start: 20200210, end: 20200210
  20. METOPROLOL. [Concomitant]
     Active Substance: METOPROLOL
     Dosage: 25,MG,TWICE DAILY
     Route: 048
     Dates: start: 20200221, end: 20200226
  21. LEVETIRACETAM. [Concomitant]
     Active Substance: LEVETIRACETAM
     Dosage: 1500,MG,TWICE DAILY
     Route: 048
     Dates: start: 20200220, end: 20200304
  22. NYSTATIN. [Concomitant]
     Active Substance: NYSTATIN
     Dosage: 500000,OTHER,FOUR TIMES DAILY
     Route: 050
     Dates: start: 20200209, end: 20200214
  23. FLUCONAZOLE. [Concomitant]
     Active Substance: FLUCONAZOLE
     Dosage: 200,MG,DAILY
     Route: 048
     Dates: start: 20200209, end: 20200224
  24. ALLOPURINOL. [Concomitant]
     Active Substance: ALLOPURINOL
     Dosage: 300,MG,DAILY
     Route: 048
     Dates: start: 20200210, end: 20200216
  25. ACETAMINOPHEN. [Concomitant]
     Active Substance: ACETAMINOPHEN
     Dosage: 1000,MG,AS NECESSARY
     Route: 048
     Dates: start: 20200216, end: 20200216
  26. CALCIUM CARBONATE. [Concomitant]
     Active Substance: CALCIUM CARBONATE
     Dosage: 500,MG,TWICE DAILY
     Route: 048
     Dates: start: 20200212, end: 20200214
  27. CEFEPIME [Concomitant]
     Active Substance: CEFEPIME HYDROCHLORIDE
     Dosage: 1,G,THREE TIMES DAILY
     Route: 042
     Dates: start: 20200215, end: 20200219
  28. ONDANSETRON [Concomitant]
     Active Substance: ONDANSETRON
     Dosage: 8,MG,ONCE
     Route: 042
     Dates: start: 20200215, end: 20200215
  29. POTASSIUM CHLORIDE. [Concomitant]
     Active Substance: POTASSIUM CHLORIDE
     Dosage: 20,OTHER,ONCE
     Route: 048
     Dates: start: 20200303, end: 20200305
  30. POTASSIUM CHLORIDE. [Concomitant]
     Active Substance: POTASSIUM CHLORIDE
     Dosage: 20,OTHER,ONCE
     Route: 042
     Dates: start: 20200304, end: 20200304
  31. FLUDARABINE [Suspect]
     Active Substance: FLUDARABINE PHOSPHATE
     Indication: BONE MARROW CONDITIONING REGIMEN
     Dosage: 30
     Route: 042
     Dates: start: 20200205, end: 20200207
  32. PROCHLORPERAZINE. [Concomitant]
     Active Substance: PROCHLORPERAZINE
     Dosage: 5,MG,TWICE DAILY
     Route: 042
     Dates: start: 20200215, end: 20200215
  33. LORATADINE. [Concomitant]
     Active Substance: LORATADINE
     Dosage: 10,MG,DAILY
     Route: 048
     Dates: start: 2000
  34. FLUTICASONE. [Concomitant]
     Active Substance: FLUTICASONE
     Dosage: 50,UG,DAILY
     Route: 045
     Dates: start: 2000
  35. TRAMADOL. [Concomitant]
     Active Substance: TRAMADOL
     Dosage: 25,MG,ONCE
     Route: 048
     Dates: start: 20200205, end: 20200205
  36. NYSTATIN. [Concomitant]
     Active Substance: NYSTATIN
     Dosage: 500000,UG,AS NECESSARY
     Route: 050
     Dates: start: 20200209
  37. DIPHENHYDRAMINE. [Concomitant]
     Active Substance: DIPHENHYDRAMINE
     Dosage: 25,MG,ONCE
     Route: 042
     Dates: start: 20200210, end: 20200210
  38. MIRTAZAPINE. [Concomitant]
     Active Substance: MIRTAZAPINE
     Dosage: 15,MG,DAILY
     Route: 048
     Dates: start: 2000, end: 20200301
  39. SODIUM CHLORIDE 0.9% [Concomitant]
     Active Substance: SODIUM CHLORIDE
     Dosage: 1000,ML,ONCE
     Route: 042
     Dates: start: 20200204, end: 20200204
  40. SODIUM CHLORIDE 0.9% [Concomitant]
     Active Substance: SODIUM CHLORIDE
     Dosage: 1000,ML,ONCE
     Route: 042
     Dates: start: 20200210, end: 20200210
  41. CLINDAMYCIN. [Concomitant]
     Active Substance: CLINDAMYCIN
     Dosage: 900,MG,ONCE
     Route: 042
     Dates: start: 20200205, end: 20200205
  42. MAGNESIUM SULFATE. [Concomitant]
     Active Substance: MAGNESIUM SULFATE
     Dosage: 2,G,DAILY
     Route: 042
     Dates: start: 20200210, end: 20200214
  43. MAGNESIUM SULFATE. [Concomitant]
     Active Substance: MAGNESIUM SULFATE
     Dosage: 2,G,DAILY
     Route: 042
     Dates: start: 20200307, end: 20200308
  44. LEVETIRACETAM. [Concomitant]
     Active Substance: LEVETIRACETAM
     Dosage: 1000,MG,AS NECESSARY
     Route: 042
     Dates: start: 20200217, end: 20200217
  45. LEVETIRACETAM. [Concomitant]
     Active Substance: LEVETIRACETAM
     Dosage: 1500,MG,AS NECESSARY
     Route: 042
     Dates: start: 20200218, end: 20200219
  46. NYSTATIN. [Concomitant]
     Active Substance: NYSTATIN
     Dosage: 500000,OTHER,TWICE DAILY
     Route: 050
     Dates: start: 20200216, end: 20200216
  47. CYCLOSPORINE. [Concomitant]
     Active Substance: CYCLOSPORINE
     Dosage: 1,OTHER,TWICE DAILY
     Route: 031
     Dates: start: 20200211, end: 20200304
  48. CYCLOPHOSPHAMIDE. [Suspect]
     Active Substance: CYCLOPHOSPHAMIDE
     Indication: BONE MARROW CONDITIONING REGIMEN
     Dosage: 500
     Route: 042
     Dates: start: 20200205, end: 20200207
  49. FAMOTIDINE. [Concomitant]
     Active Substance: FAMOTIDINE
     Dosage: 20,MG,TWICE DAILY
     Route: 048
     Dates: start: 2000
  50. MAGNESIUM AMINO ACID CHELATE [Concomitant]
     Active Substance: MAGNESIUM
     Dosage: 266,MG,ONCE
     Route: 048
     Dates: start: 20200204, end: 20200204
  51. SODIUM CHLORIDE 0.9% [Concomitant]
     Active Substance: SODIUM CHLORIDE
     Dosage: 1000,MG/L,AS NECESSARY
     Route: 042
     Dates: start: 20200215, end: 20200216
  52. SODIUM CHLORIDE 0.9% [Concomitant]
     Active Substance: SODIUM CHLORIDE
     Dosage: 1000,ML,AS NECESSARY
     Route: 042
     Dates: start: 20200229, end: 20200309
  53. LEVETIRACETAM. [Concomitant]
     Active Substance: LEVETIRACETAM
     Dosage: 750,MG,TWICE DAILY
     Route: 048
     Dates: start: 20200209, end: 20200214
  54. NYSTATIN. [Concomitant]
     Active Substance: NYSTATIN
     Dosage: 500000,OTHER,FOUR TIMES DAILY
     Route: 050
     Dates: start: 20200219, end: 20200219
  55. ACETAMINOPHEN. [Concomitant]
     Active Substance: ACETAMINOPHEN
     Dosage: 650,MG,DAILY
     Route: 048
     Dates: start: 20200212, end: 20200215
  56. ACETAMINOPHEN. [Concomitant]
     Active Substance: ACETAMINOPHEN
     Dosage: 500,MG,ONCE
     Route: 048
     Dates: start: 20200305, end: 20200305
  57. POTASSIUM CHLORIDE. [Concomitant]
     Active Substance: POTASSIUM CHLORIDE
     Dosage: 20,OTHER,ONCE
     Route: 042
     Dates: start: 20200215, end: 20200215
  58. MIRTAZAPINE. [Concomitant]
     Active Substance: MIRTAZAPINE
     Dosage: 15,MG,DAILY
     Route: 048
     Dates: start: 2000
  59. MAGNESIUM SULFATE. [Concomitant]
     Active Substance: MAGNESIUM SULFATE
     Dosage: 4,/G,EVERY, OTHER DAY
     Route: 042
     Dates: start: 20200301, end: 20200304
  60. LEVETIRACETAM. [Concomitant]
     Active Substance: LEVETIRACETAM
     Dosage: 750,MG,TWICE DAILY
     Route: 042
     Dates: start: 20200215, end: 20200216
  61. NYSTATIN. [Concomitant]
     Active Substance: NYSTATIN
     Dosage: 500000,OTHER,THREE TIMES DAILY
     Route: 050
     Dates: start: 20200218, end: 20200218
  62. ACYCLOVIR [ACICLOVIR] [Concomitant]
     Active Substance: ACYCLOVIR
     Dosage: 800,MG,TWICE DAILY
     Route: 048
     Dates: start: 20200209, end: 20200215
  63. CEFEPIME [Concomitant]
     Active Substance: CEFEPIME HYDROCHLORIDE
     Dosage: 1,G,THREE TIMES DAILY
     Route: 042
     Dates: start: 20200215
  64. PROCHLORPERAZINE. [Concomitant]
     Active Substance: PROCHLORPERAZINE
     Dosage: 10,MG,AS NECESSARY
     Route: 048
     Dates: start: 2000, end: 20200207
  65. FAMOTIDINE. [Concomitant]
     Active Substance: FAMOTIDINE
     Dosage: 20,MG,DAILY
     Route: 048
     Dates: start: 20200229
  66. MAGNESIUM AMINO ACID CHELATE [Concomitant]
     Active Substance: MAGNESIUM
     Dosage: 266,MG,DAILY
     Route: 048
     Dates: start: 20200305, end: 20200310
  67. SODIUM CHLORIDE 0.9% [Concomitant]
     Active Substance: SODIUM CHLORIDE
     Dosage: 1000,ML,ONCE
     Route: 042
     Dates: start: 20200205, end: 20200205
  68. SODIUM CHLORIDE 0.9% [Concomitant]
     Active Substance: SODIUM CHLORIDE
     Dosage: 1000,ML,AS NECESSARY
     Route: 042
     Dates: start: 20200221, end: 20200222
  69. SODIUM CHLORIDE 0.9% [Concomitant]
     Active Substance: SODIUM CHLORIDE
     Dosage: 1000,ML,AS NECESSARY
     Route: 042
     Dates: start: 20200229, end: 20200304
  70. MIDAZOLAM. [Concomitant]
     Active Substance: MIDAZOLAM
     Dosage: 0.5,MG,TWICE DAILY
     Route: 042
     Dates: start: 20200205, end: 20200205
  71. PALONOSETRON. [Concomitant]
     Active Substance: PALONOSETRON HYDROCHLORIDE
     Dosage: 0.25,MG,ONCE
     Route: 042
     Dates: start: 20200205, end: 20200205
  72. MAGNESIUM SULFATE. [Concomitant]
     Active Substance: MAGNESIUM SULFATE
     Dosage: 4,G,ONCE
     Route: 042
     Dates: start: 20200206, end: 20200206
  73. MAGNESIUM SULFATE. [Concomitant]
     Active Substance: MAGNESIUM SULFATE
     Dosage: 2,G,ONCE
     Route: 042
     Dates: start: 20200304, end: 20200305
  74. FUROSEMIDE. [Concomitant]
     Active Substance: FUROSEMIDE
     Dosage: 10,MG,ONCE
     Route: 042
     Dates: start: 20200207, end: 20200207
  75. NYSTATIN. [Concomitant]
     Active Substance: NYSTATIN
     Dosage: 500000,OTHER,THREE TIMES DAILY
     Route: 050
     Dates: start: 20200215, end: 20200215
  76. ACYCLOVIR [ACICLOVIR] [Concomitant]
     Active Substance: ACYCLOVIR
     Dosage: 800,MG,TWICE DAILY
     Route: 048
     Dates: start: 20200219, end: 20200304
  77. POTASSIUM CHLORIDE. [Concomitant]
     Active Substance: POTASSIUM CHLORIDE
     Dosage: 20,OTHER,ONCE
     Route: 048
     Dates: start: 20200306, end: 20200307

REACTIONS (4)
  - Memory impairment [Recovered/Resolved]
  - Hypothyroidism [Recovered/Resolved]
  - Confusional state [Recovered/Resolved]
  - Confusional state [Recovered/Resolved]

NARRATIVE: CASE EVENT DATE: 20200215
